FAERS Safety Report 17670532 (Version 1)
Quarter: 2020Q2

REPORT INFORMATION
  Report Type: Spontaneous
  Country: IT (occurrence: IT)
  Receive Date: 20200415
  Receipt Date: 20200415
  Transmission Date: 20200713
  Serious: Yes (Other)
  Sender: FDA-Public Use
  Company Number: IT-MYLANLABS-2020M1037340

PATIENT
  Age: 45 Year
  Sex: Female

DRUGS (7)
  1. TRASTUZUMAB. [Suspect]
     Active Substance: TRASTUZUMAB
     Dosage: 4 MG/KG (FOR THE FIRST WEEK)
     Route: 065
  2. TRASTUZUMAB. [Suspect]
     Active Substance: TRASTUZUMAB
     Dosage: 2 MG/KG, 1 WEEK (FOR 11 CYCLES)
     Route: 065
  3. ENDOXAN                            /00021102/ [Suspect]
     Active Substance: CYCLOPHOSPHAMIDE
     Dosage: 600 MG/M2 EVERY 4 CYCLES WITH AN INTER-CYCLE INTERVAL OF 21 DAYS
     Route: 065
  4. TRASTUZUMAB. [Suspect]
     Active Substance: TRASTUZUMAB
     Dosage: 6MG/KG(FOR 13 CYCLES(INTER-CYCLE PAUSES OF 21 DAYS
     Route: 065
  5. TRASTUZUMAB. [Suspect]
     Active Substance: TRASTUZUMAB
     Dosage: 2 MG/KG EVERY 4 CYCLES
     Route: 065
  6. EPIRUBICIN [Suspect]
     Active Substance: EPIRUBICIN
     Dosage: 90 MG/M2 EVERY 4 CYCLES WITH INTER-CYCLE INTERVAL OF 21 DAYS
     Route: 065
  7. PACLITAXEL. [Suspect]
     Active Substance: PACLITAXEL
     Dosage: 80 MG/M2
     Route: 065

REACTIONS (2)
  - Product use issue [Unknown]
  - Cardiac dysfunction [Recovered/Resolved]
